FAERS Safety Report 7361959-6 (Version None)
Quarter: 2011Q1

REPORT INFORMATION
  Report Type: 
  Country: None (occurrence: None)
  Receive Date: 20110318
  Receipt Date: 20110314
  Transmission Date: 20110831
  Serious: Yes (Death, Other)
  Sender: FDA-Public Use
  Company Number: PHHY2011JP20654

PATIENT
  Age: 5 Year
  Sex: Male

DRUGS (16)
  1. METHOTREXATE [Suspect]
     Indication: GRAFT VERSUS HOST DISEASE
  2. CYCLOPHOSPHAMIDE [Suspect]
     Indication: BONE MARROW TRANSPLANT
     Dosage: 10 MG/KG, UNK
  3. VINDESINE [Suspect]
  4. FLUDARABINE [Suspect]
     Dosage: 30 MG/M2, UNK
  5. ASPARAGINASE [Suspect]
     Dosage: 6000 U/M2
  6. NELARABINE [Suspect]
     Dosage: 325 MG/M2, UNK
  7. FLUDARABINE [Suspect]
     Indication: BONE MARROW TRANSPLANT
     Dosage: 25 MG/M2, UNK
  8. MYCOPHENOLATE MOFETIL [Suspect]
     Indication: GRAFT VERSUS HOST DISEASE
  9. CYTARABINE [Suspect]
     Dosage: 300 MG/M2, UNK
  10. PREDNISOLONE [Suspect]
     Dosage: 30 MG/M2, QD
  11. PREDNISOLONE [Suspect]
     Dosage: 60 MG/M2, QD
  12. RADIOTHERAPY [Suspect]
     Indication: BONE MARROW TRANSPLANT
  13. TACROLIMUS [Suspect]
     Indication: GRAFT VERSUS HOST DISEASE
  14. VINCRISTINE [Suspect]
     Dosage: 1.5 MG/M2, UNK
  15. METHYLPREDNISOLONE [Suspect]
     Dosage: 30 MG/KG, UNK
  16. ANTI-THYMOCYTE GLOBULIN RABBIT NOS [Suspect]
     Indication: BONE MARROW TRANSPLANT
     Dosage: 1.25 MEQ/KG, UNK

REACTIONS (16)
  - SERUM FERRITIN INCREASED [None]
  - TOXICITY TO VARIOUS AGENTS [None]
  - ABDOMINAL PAIN [None]
  - GENERAL PHYSICAL HEALTH DETERIORATION [None]
  - CARDIO-RESPIRATORY ARREST [None]
  - PRECURSOR T-LYMPHOBLASTIC LYMPHOMA/LEUKAEMIA [None]
  - BLOOD LACTATE DEHYDROGENASE INCREASED [None]
  - PYREXIA [None]
  - HYPERGLYCAEMIA [None]
  - ILEUS PARALYTIC [None]
  - SKIN EROSION [None]
  - COUGH [None]
  - THERAPEUTIC RESPONSE DECREASED [None]
  - HYPOPROTEINAEMIA [None]
  - MELAENA [None]
  - PLEURAL EFFUSION [None]
